FAERS Safety Report 12323969 (Version 2)
Quarter: 2016Q2

REPORT INFORMATION
  Report Type: Spontaneous
  Country: US (occurrence: US)
  Receive Date: 20160502
  Receipt Date: 20160517
  Transmission Date: 20160815
  Serious: Yes (Other)
  Sender: FDA-Public Use
  Company Number: US-TEVA-656936USA

PATIENT
  Age: 13 Year
  Sex: Male

DRUGS (6)
  1. RISPERIDONE. [Suspect]
     Active Substance: RISPERIDONE
     Indication: AGGRESSION
     Dosage: TAPERED TO 0.5 MG TWICE DAILY AND THEN DISCONTINUED; AGAIN STARTED,UNKNOWN
     Route: 065
  2. QUETIAPINE. [Concomitant]
     Active Substance: QUETIAPINE
     Dosage: (300 MG,3 IN 1 D),UNKNOWN
     Route: 065
  3. METHYLPHENIDATE HYDROCHLORIDE. [Suspect]
     Active Substance: METHYLPHENIDATE HYDROCHLORIDE
     Route: 065
  4. RISPERIDONE. [Suspect]
     Active Substance: RISPERIDONE
     Indication: AGGRESSION
     Dosage: STARTED AT THE AGE OF 4 YEARS AND TITRATED TO 1.5MG TWICE DAILY; TAPERED,UNKNOWN
  5. RISPERIDONE. [Suspect]
     Active Substance: RISPERIDONE
     Indication: AGGRESSION
     Dosage: AGAIN STARTED AT 0.5 MG TWICE DAILY AND INCREASED TO 1.5 MG TWICE DAILY WITHIN 3 DAYS,UNKNOWN
     Route: 065
  6. OXCARBAZEPINE. [Concomitant]
     Active Substance: OXCARBAZEPINE
     Route: 065

REACTIONS (3)
  - Weight increased [Unknown]
  - Drug withdrawal syndrome [Recovered/Resolved]
  - Extrapyramidal disorder [Recovered/Resolved]
